FAERS Safety Report 10364762 (Version 3)
Quarter: 2022Q1

REPORT INFORMATION
  Report Type: Spontaneous
  Country: US (occurrence: US)
  Receive Date: 20140806
  Receipt Date: 20220213
  Transmission Date: 20220423
  Serious: Yes (Hospitalization, Other)
  Sender: FDA-Public Use
  Company Number: US-JNJFOC-20140800604

PATIENT
  Sex: Male
  Weight: 116.68 kg

DRUGS (5)
  1. RISPERDAL [Suspect]
     Active Substance: RISPERIDONE
     Indication: Depression
     Dosage: 0.5 OR 1 MG
     Route: 048
     Dates: start: 2003, end: 2005
  2. INVEGA [Suspect]
     Active Substance: PALIPERIDONE
     Indication: Product used for unknown indication
     Route: 048
  3. CONCERTA [Suspect]
     Active Substance: METHYLPHENIDATE HYDROCHLORIDE
     Indication: Product used for unknown indication
     Route: 048
  4. LEXAPRO [Suspect]
     Active Substance: ESCITALOPRAM OXALATE
     Indication: Depression
     Route: 065
  5. CLONIDINE [Suspect]
     Active Substance: CLONIDINE
     Indication: Product used for unknown indication
     Route: 065

REACTIONS (11)
  - Suicidal ideation [Recovered/Resolved]
  - Homicidal ideation [Unknown]
  - Depression [Recovered/Resolved]
  - Aggression [Recovered/Resolved]
  - Gynaecomastia [Not Recovered/Not Resolved]
  - Behaviour disorder [Unknown]
  - Galactorrhoea [Unknown]
  - Impulse-control disorder [Recovered/Resolved]
  - Attention deficit hyperactivity disorder [Not Recovered/Not Resolved]
  - Off label use [Unknown]
  - Product use in unapproved indication [Unknown]

NARRATIVE: CASE EVENT DATE: 20030101
